FAERS Safety Report 7470219-4 (Version None)
Quarter: 2011Q2

REPORT INFORMATION
  Report Type: 
  Country: None (occurrence: None)
  Receive Date: 20110510
  Receipt Date: 20110509
  Transmission Date: 20111010
  Serious: Yes (Other)
  Sender: FDA-Public Use
  Company Number: US-PFIZER INC-2009240201

PATIENT
  Sex: Female
  Weight: 81 kg

DRUGS (5)
  1. PROVERA [Suspect]
     Indication: HORMONE REPLACEMENT THERAPY
     Dosage: UNK
     Route: 048
     Dates: end: 20000101
  2. ALLEGRA [Concomitant]
     Indication: HYPERSENSITIVITY
     Dosage: UNK
     Dates: end: 20010101
  3. NASACORT [Concomitant]
     Indication: HYPERSENSITIVITY
     Dosage: UNK
     Dates: end: 20010101
  4. SELDANE [Concomitant]
     Indication: HYPERSENSITIVITY
     Dosage: UNK
     Dates: end: 20010101
  5. PREMARIN [Suspect]
     Indication: HORMONE REPLACEMENT THERAPY
     Dosage: UNK
     Route: 048
     Dates: end: 20000101

REACTIONS (1)
  - BREAST CANCER FEMALE [None]
